FAERS Safety Report 26169834 (Version 2)
Quarter: 2025Q4

REPORT INFORMATION
  Report Type: Spontaneous
  Country: CN (occurrence: CN)
  Receive Date: 20251217
  Receipt Date: 20251229
  Transmission Date: 20260118
  Serious: Yes (Hospitalization, Other)
  Sender: NOVO NORDISK
  Company Number: CN-NOVOPROD-1579133

PATIENT
  Age: 38 Year
  Sex: Male
  Weight: 100 kg

DRUGS (3)
  1. OZEMPIC [Suspect]
     Active Substance: SEMAGLUTIDE
     Indication: Weight control
     Dosage: 20 CLICKS
     Dates: start: 202404
  2. OZEMPIC [Suspect]
     Active Substance: SEMAGLUTIDE
     Dosage: 18 CLICKS
  3. OZEMPIC [Suspect]
     Active Substance: SEMAGLUTIDE
     Dosage: 17 CLICKS

REACTIONS (12)
  - Intraocular pressure test abnormal [Recovering/Resolving]
  - Glaucoma [Recovering/Resolving]
  - Optic atrophy [Unknown]
  - Dehydration [Recovering/Resolving]
  - Thirst [Recovered/Resolved]
  - Vitreous opacities [Recovering/Resolving]
  - Ischaemia [Unknown]
  - Condition aggravated [Unknown]
  - Decreased appetite [Recovered/Resolved]
  - Wrong technique in product usage process [Unknown]
  - Product use in unapproved indication [Unknown]
  - Prescription drug used without a prescription [Unknown]

NARRATIVE: CASE EVENT DATE: 20240401
